FAERS Safety Report 23303250 (Version 1)
Quarter: 2023Q4

REPORT INFORMATION
  Report Type: Spontaneous
  Country: GB (occurrence: None)
  Receive Date: 20231215
  Receipt Date: 20231215
  Transmission Date: 20240110
  Serious: Yes (Death)
  Sender: FDA-Public Use
  Company Number: 2023A284334

PATIENT
  Age: 81 Year
  Sex: Female

DRUGS (13)
  1. ANDEXANET ALFA [Suspect]
     Active Substance: ANDEXANET ALFA
     Indication: Gastrointestinal haemorrhage
     Dosage: 800MG ONE OFF DOSE; ;
     Dates: start: 20231110
  2. AMITRIPTYLINE [Concomitant]
     Active Substance: AMITRIPTYLINE
  3. APIXABAN [Concomitant]
     Active Substance: APIXABAN
     Dates: start: 20231110
  4. BERIPLEX HS [Concomitant]
     Active Substance: COAGULATION FACTOR IX HUMAN\COAGULATION FACTOR VII HUMAN\COAGULATION FACTOR X HUMAN\PROTEIN C\PROTEI
  5. CLARITHROMYCIN [Concomitant]
     Active Substance: CLARITHROMYCIN
  6. CYCLIZINE [Concomitant]
     Active Substance: CYCLIZINE
  7. DALTEPARIN [Concomitant]
     Active Substance: DALTEPARIN
  8. ENOXAPARIN [Concomitant]
     Active Substance: ENOXAPARIN
  9. LANSOPRAZOLE [Concomitant]
     Active Substance: LANSOPRAZOLE
  10. ONDANSETRON [Concomitant]
     Active Substance: ONDANSETRON
  11. PREDNISOLONE [Concomitant]
     Active Substance: PREDNISOLONE
  12. TRANEXAMIC ACID [Concomitant]
     Active Substance: TRANEXAMIC ACID
  13. WARFARIN [Concomitant]
     Active Substance: WARFARIN

REACTIONS (1)
  - Cerebral infarction [Fatal]

NARRATIVE: CASE EVENT DATE: 20231111
